FAERS Safety Report 5090020-9 (Version None)
Quarter: 2006Q3

REPORT INFORMATION
  Report Type: 
  Country: None (occurrence: None)
  Receive Date: 20060731
  Receipt Date: 20060510
  Transmission Date: 20061208
  Serious: Yes (Other)
  Sender: FDA-Public Use
  Company Number: 200612797BWH

PATIENT
  Age: 39 Year
  Sex: Female

DRUGS (2)
  1. AVELOX [Suspect]
     Indication: STAPHYLOCOCCAL INFECTION
     Dosage: 400 MG, ONCE, ORAL
     Route: 048
     Dates: start: 20060425
  2. ORTHO TRI-CYCLEN [Concomitant]

REACTIONS (10)
  - CHEST DISCOMFORT [None]
  - DIZZINESS [None]
  - DYSPNOEA [None]
  - ERYTHEMA [None]
  - FEELING HOT [None]
  - HYPERHIDROSIS [None]
  - MUSCULAR WEAKNESS [None]
  - NAUSEA [None]
  - PARAESTHESIA [None]
  - SWELLING FACE [None]
